FAERS Safety Report 21382603 (Version 6)
Quarter: 2023Q4

REPORT INFORMATION
  Report Type: Spontaneous
  Country: US (occurrence: None)
  Receive Date: 20220927
  Receipt Date: 20231109
  Transmission Date: 20240110
  Serious: Yes (Hospitalization, Other)
  Sender: FDA-Public Use
  Company Number: US-ROCHE-3184250

PATIENT
  Age: 29 Year
  Sex: Female
  Weight: 63.56 kg

DRUGS (10)
  1. XOLAIR [Suspect]
     Active Substance: OMALIZUMAB
     Indication: Urticaria
     Dosage: 150 MG X 2
     Route: 058
  2. XOLAIR [Suspect]
     Active Substance: OMALIZUMAB
  3. XOLAIR [Suspect]
     Active Substance: OMALIZUMAB
  4. XOLAIR [Suspect]
     Active Substance: OMALIZUMAB
     Indication: Angioedema
     Route: 058
  5. XOLAIR [Suspect]
     Active Substance: OMALIZUMAB
  6. XOLAIR [Suspect]
     Active Substance: OMALIZUMAB
  7. ZYRTEC [Concomitant]
     Active Substance: CETIRIZINE HYDROCHLORIDE
     Indication: Urticaria
     Route: 048
  8. MONTELUKAST [Concomitant]
     Active Substance: MONTELUKAST SODIUM
     Route: 048
  9. MIRALAX [Concomitant]
     Active Substance: POLYETHYLENE GLYCOL 3350
     Indication: Irritable bowel syndrome
     Dosage: ROUGHLY 10 GRAMS PER DAY
     Route: 048
  10. DULOXETINE [Concomitant]
     Active Substance: DULOXETINE
     Indication: Neuralgia
     Route: 048
     Dates: start: 2020

REACTIONS (7)
  - Drug hypersensitivity [Not Recovered/Not Resolved]
  - Kidney infection [Recovered/Resolved]
  - Hemiplegic migraine [Recovering/Resolving]
  - Needle issue [Unknown]
  - Intentional product misuse [Unknown]
  - Off label use [Unknown]
  - Needle issue [Unknown]

NARRATIVE: CASE EVENT DATE: 20220401
